FAERS Safety Report 10035745 (Version 1)
Quarter: 2014Q1

REPORT INFORMATION
  Report Type: Spontaneous
  Country: AR (occurrence: AR)
  Receive Date: 20140325
  Receipt Date: 20140325
  Transmission Date: 20141002
  Serious: Yes (Hospitalization)
  Sender: FDA-Public Use
  Company Number: AR-GLAXOSMITHKLINE-A1066530A

PATIENT
  Age: 74 Year
  Sex: Male

DRUGS (11)
  1. LAMICTAL [Suspect]
     Indication: EPILEPSY
     Dosage: 25MG PER DAY
     Route: 048
     Dates: start: 201402
  2. QUETIAPINE [Concomitant]
  3. LORAZEPAM [Concomitant]
  4. ALLOPURINOL [Concomitant]
  5. AGOMELATINE [Concomitant]
  6. FOLIC ACID [Concomitant]
  7. ZARATOR [Concomitant]
  8. CALCIUM [Concomitant]
  9. BISOPROLOL [Concomitant]
  10. ASPIRINA [Concomitant]
  11. EPOGEN [Concomitant]

REACTIONS (6)
  - Hypothermia [Unknown]
  - Rash maculo-papular [Recovering/Resolving]
  - Petechiae [Recovering/Resolving]
  - Rash pruritic [Recovering/Resolving]
  - Blood urea increased [Unknown]
  - Blood phosphorus increased [Unknown]
